FAERS Safety Report 22520151 (Version 1)
Quarter: 2023Q2

REPORT INFORMATION
  Report Type: Spontaneous
  Country: JP (occurrence: JP)
  Receive Date: 20230605
  Receipt Date: 20230605
  Transmission Date: 20230722
  Serious: Yes (Hospitalization)
  Sender: FDA-Public Use
  Company Number: JP-PFIZER INC-PV202300082646

PATIENT
  Age: 11 Year
  Sex: Female
  Weight: 12.2 kg

DRUGS (1)
  1. GENOTROPIN [Suspect]
     Active Substance: SOMATROPIN
     Indication: Blood growth hormone
     Dosage: 7.05 MG, WEEKLY (0.9 MG X 2 DAYS, 1.05 MG X 5 DAYS)
     Route: 058
     Dates: start: 20170110

REACTIONS (5)
  - Tendon pain [Recovering/Resolving]
  - Tendon disorder [Recovering/Resolving]
  - Cyanosis [Recovering/Resolving]
  - Peripheral coldness [Recovering/Resolving]
  - Vascular insufficiency [Unknown]

NARRATIVE: CASE EVENT DATE: 20230501
